FAERS Safety Report 14611101 (Version 1)
Quarter: 2018Q1

REPORT INFORMATION
  Report Type: Spontaneous
  Country: IT (occurrence: IT)
  Receive Date: 20180308
  Receipt Date: 20180308
  Transmission Date: 20180509
  Serious: Yes (Hospitalization)
  Sender: FDA-Public Use
  Company Number: IT-CIPLA LTD.-2018IT08649

PATIENT

DRUGS (1)
  1. ESCITALOPRAM [Suspect]
     Active Substance: ESCITALOPRAM OXALATE
     Indication: PRODUCT USED FOR UNKNOWN INDICATION
     Dosage: 20 DF, IN TOTAL
     Route: 048

REACTIONS (4)
  - Asthenia [Unknown]
  - Agitation [Unknown]
  - Restlessness [Unknown]
  - Drug abuse [Unknown]

NARRATIVE: CASE EVENT DATE: 20170214
